FAERS Safety Report 7241690-8 (Version None)
Quarter: 2011Q1

REPORT INFORMATION
  Report Type: 
  Country: None (occurrence: None)
  Receive Date: 20110124
  Receipt Date: 20110114
  Transmission Date: 20110831
  Serious: Yes (Hospitalization)
  Sender: FDA-Public Use
  Company Number: PHHO2011ES01142

PATIENT
  Sex: Female
  Weight: 77 kg

DRUGS (3)
  1. PROGRAF [Suspect]
     Indication: RENAL TRANSPLANT
     Dosage: 4 MG, BID
     Route: 048
     Dates: start: 20110108
  2. PREDNISONE [Concomitant]
     Indication: RENAL TRANSPLANT
     Dosage: 60 MG, QD
     Route: 048
     Dates: start: 20110110
  3. MYFORTIC [Suspect]
     Indication: RENAL TRANSPLANT
     Dosage: 720 MG, BID
     Route: 048
     Dates: start: 20110107

REACTIONS (3)
  - RENAL IMPAIRMENT [None]
  - RENAL ARTERY THROMBOSIS [None]
  - REMOVAL OF RENAL TRANSPLANT [None]
